FAERS Safety Report 6382739-4 (Version None)
Quarter: 2009Q3

REPORT INFORMATION
  Report Type: 
  Country: None (occurrence: None)
  Receive Date: 20090930
  Receipt Date: 20090925
  Transmission Date: 20100115
  Serious: Yes (Other)
  Sender: FDA-Public Use
  Company Number: GB-MERCK-0909GBR00085

PATIENT

DRUGS (5)
  1. JANUVIA [Suspect]
     Indication: DIABETES MELLITUS
     Route: 048
     Dates: start: 20090824, end: 20090828
  2. AMLODIPINE [Concomitant]
     Route: 048
     Dates: start: 20061120
  3. ASPIRIN [Concomitant]
     Route: 048
     Dates: start: 20081020
  4. METFORMIN [Concomitant]
     Route: 048
     Dates: start: 20060628
  5. SIMVASTATIN [Concomitant]
     Route: 048
     Dates: start: 20060628

REACTIONS (1)
  - TREMOR [None]
